FAERS Safety Report 5008625-X (Version None)
Quarter: 2006Q2

REPORT INFORMATION
  Report Type: 
  Country: None (occurrence: None)
  Receive Date: 20060523
  Receipt Date: 20060516
  Transmission Date: 20061013
  Serious: Yes (Other)
  Sender: FDA-Public Use
  Company Number: CA-BRISTOL-MYERS SQUIBB COMPANY-13379078

PATIENT
  Age: 34 Year
  Sex: Female
  Weight: 78 kg

DRUGS (7)
  1. SUSTIVA [Suspect]
     Indication: HIV TEST POSITIVE
     Route: 048
     Dates: start: 20050422, end: 20060323
  2. ATAZANAVIR [Suspect]
     Dates: start: 20060101
  3. LAMIVUDINE [Suspect]
     Indication: HIV TEST POSITIVE
     Route: 048
  4. ZIAGEN [Suspect]
     Indication: HIV TEST POSITIVE
     Route: 048
  5. COMBIVIR [Suspect]
     Dates: start: 20060101
  6. RITONAVIR [Suspect]
     Dates: start: 20060101
  7. TRIPHASIL-28 [Concomitant]
     Indication: ORAL CONTRACEPTION
     Route: 048
     Dates: start: 20051203, end: 20060324

REACTIONS (2)
  - ABORTION SPONTANEOUS [None]
  - PREGNANCY [None]
